FAERS Safety Report 4438500-0 (Version None)
Quarter: 2004Q3

REPORT INFORMATION
  Report Type: 
  Country: None (occurrence: None)
  Receive Date: 20040726
  Receipt Date: 20040331
  Transmission Date: 20050211
  Serious: No
  Sender: FDA-Public Use
  Company Number: USA040463710

PATIENT
  Age: 72 Year
  Sex: Female

DRUGS (8)
  1. FORTEO [Suspect]
     Indication: OSTEOPOROSIS
     Dates: start: 20030901, end: 20040301
  2. GAVISCON [Concomitant]
  3. NEURONTIN [Concomitant]
  4. PEPCID [Concomitant]
  5. ASPIRIN [Concomitant]
  6. ACIPHEX [Concomitant]
  7. MULTIVITAMIN [Concomitant]
  8. ZELNORM (ZELNORM) [Concomitant]

REACTIONS (1)
  - BLOOD ALKALINE PHOSPHATASE INCREASED [None]
